FAERS Safety Report 5935462-1 (Version None)
Quarter: 2008Q4

REPORT INFORMATION
  Report Type: 
  Country: None (occurrence: None)
  Receive Date: 20081028
  Receipt Date: 20081017
  Transmission Date: 20090506
  Serious: Yes (Hospitalization)
  Sender: FDA-Public Use
  Company Number: 2008BI027920

PATIENT
  Age: 50 Year
  Sex: Female

DRUGS (3)
  1. TYSABRI [Suspect]
     Indication: MULTIPLE SCLEROSIS
     Dosage: 300 MG; QM; IV
     Route: 030
     Dates: start: 20071008, end: 20071203
  2. CON MEDS [Concomitant]
  3. PREV MEDS [Concomitant]

REACTIONS (7)
  - ASTHENIA [None]
  - CENTRAL NERVOUS SYSTEM INFLAMMATION [None]
  - CYSTITIS [None]
  - HYPERSENSITIVITY [None]
  - KIDNEY INFECTION [None]
  - MUSCLE SPASMS [None]
  - PAIN [None]
